FAERS Safety Report 11282109 (Version 1)
Quarter: 2015Q3

REPORT INFORMATION
  Report Type: Report from Study
  Country: CO (occurrence: CO)
  Receive Date: 20150719
  Receipt Date: 20150719
  Transmission Date: 20151125
  Serious: Yes (Death)
  Sender: FDA-Public Use
  Company Number: CO-ABBVIE-15K-036-1429662-00

PATIENT
  Age: 81 Year
  Sex: Female
  Weight: 65 kg

DRUGS (1)
  1. HUMIRA [Suspect]
     Active Substance: ADALIMUMAB
     Indication: RHEUMATOID ARTHRITIS
     Route: 058
     Dates: start: 20090106, end: 20140919

REACTIONS (1)
  - Abdominal pain [Fatal]

NARRATIVE: CASE EVENT DATE: 20141214
